FAERS Safety Report 4823843-9 (Version None)
Quarter: 2005Q4

REPORT INFORMATION
  Report Type: 
  Country: None (occurrence: None)
  Receive Date: 20051107
  Receipt Date: 20051025
  Transmission Date: 20060501
  Serious: Yes (Hospitalization)
  Sender: FDA-Public Use
  Company Number: B0318456A

PATIENT
  Age: 30 Year
  Sex: Male

DRUGS (1)
  1. WELLBUTRIN SR [Suspect]
     Dosage: ORAL
     Route: 048

REACTIONS (11)
  - AGITATION [None]
  - BLOOD GLUCOSE INCREASED [None]
  - CHOREOATHETOSIS [None]
  - CONVULSION [None]
  - DISORIENTATION [None]
  - DRUG TOXICITY [None]
  - ELECTROCARDIOGRAM QRS COMPLEX PROLONGED [None]
  - HALLUCINATION [None]
  - OVERDOSE [None]
  - SINUS TACHYCARDIA [None]
  - URINARY INCONTINENCE [None]
